FAERS Safety Report 6597224-4 (Version None)
Quarter: 2010Q1

REPORT INFORMATION
  Report Type: 
  Country: None (occurrence: None)
  Receive Date: 20100212
  Receipt Date: 20100127
  Transmission Date: 20100710
  Serious: Yes (Other)
  Sender: FDA-Public Use
  Company Number: ALL1-2010-00418

PATIENT
  Age: 12 Year
  Sex: Female
  Weight: 54.4 kg

DRUGS (1)
  1. VYVANSE [Suspect]
     Indication: ATTENTION DEFICIT/HYPERACTIVITY DISORDER
     Dosage: 60 MG, 1X/DAY:QD (WEEKSDAYS ONLY), ORAL
     Route: 048
     Dates: start: 20091001

REACTIONS (3)
  - JOINT SWELLING [None]
  - SKIN NODULE [None]
  - SPONDYLOARTHROPATHY [None]
